FAERS Safety Report 8575516-7 (Version None)
Quarter: 2012Q3

REPORT INFORMATION
  Report Type: 
  Country: None (occurrence: None)
  Receive Date: 20120807
  Receipt Date: 20120802
  Transmission Date: 20120928
  Serious: Yes (Life-Threatening, Hospitalization, Other)
  Sender: FDA-Public Use
  Company Number: PHHY2012BR026830

PATIENT
  Sex: Female
  Weight: 69 kg

DRUGS (22)
  1. PHENERGAN [Suspect]
  2. CIPROFIBRATE [Concomitant]
     Indication: BLOOD TRIGLYCERIDES INCREASED
     Dosage: 1 DF, QD
     Route: 048
  3. ATENOLOL [Concomitant]
  4. METFORMIN HCL [Concomitant]
     Indication: DIABETES MELLITUS
     Dosage: 1 DF, BID
     Route: 048
  5. HYDERGINE [Suspect]
     Indication: DIZZINESS
     Dosage: 1 DF, QD
     Route: 048
     Dates: start: 19860101
  6. DIOVAN HCT [Suspect]
     Indication: HYPERTENSION
     Dosage: 1 DF (160 MG VALS AND 12.5 MG HYDRO), QD
     Route: 048
  7. DIOVAN HCT [Suspect]
     Dosage: 1 DF, 160/25MG A DAY
     Route: 048
  8. SIMVASTATIN [Concomitant]
     Indication: BLOOD CHOLESTEROL INCREASED
     Dosage: 1 DF, QD
     Route: 048
  9. METOPROLOL SUCCINATE [Concomitant]
     Indication: CARDIAC DISORDER
     Dosage: 1 DF, QD
     Route: 048
  10. ACETAMINOPHEN [Concomitant]
     Indication: PAIN
  11. RIVOTRIL [Concomitant]
     Indication: EPILEPSY
     Dosage: 1 DF, A DAY
  12. SUSTRATE [Concomitant]
     Indication: CHEST PAIN
     Dosage: 5 DF, QD
  13. DIAZEPAM [Concomitant]
     Indication: BLOOD PRESSURE INCREASED
  14. SAXAGLIPTIN [Concomitant]
     Indication: DIABETES MELLITUS
     Dosage: 1 DF, UNK
  15. DIOVAN HCT [Suspect]
     Dosage: 2 DF (160 MG VALS AND 12.5 MG HYDRO), A DAY
     Route: 048
  16. DIOVAN HCT [Suspect]
     Dosage: 2 DF, 160/25MG A DAY
     Route: 048
  17. OMEPRAZOLE [Concomitant]
  18. DIOVAN HCT [Suspect]
     Dosage: 1 DF, 320/12.5 MG
     Route: 048
  19. SERTRALINE [Concomitant]
  20. CITALOPRAM HYDROBROMIDE [Concomitant]
  21. PANTOPRAZOLE [Concomitant]
  22. LOVAZA [Concomitant]

REACTIONS (21)
  - MEMORY IMPAIRMENT [None]
  - HYPERTENSIVE CRISIS [None]
  - DIABETES MELLITUS [None]
  - BALANCE DISORDER [None]
  - DYSPNOEA [None]
  - HYPOGLYCAEMIA [None]
  - FEELING DRUNK [None]
  - ANAPHYLACTIC SHOCK [None]
  - UNEVALUABLE EVENT [None]
  - DIZZINESS [None]
  - SENSORY LOSS [None]
  - THROMBOPHLEBITIS [None]
  - LOSS OF CONSCIOUSNESS [None]
  - GLAUCOMA [None]
  - BLOOD GLUCOSE INCREASED [None]
  - URINE OUTPUT DECREASED [None]
  - HALLUCINATION [None]
  - TREATMENT NONCOMPLIANCE [None]
  - SYNCOPE [None]
  - SENSATION OF HEAVINESS [None]
  - EYE DISORDER [None]
